FAERS Safety Report 24189504 (Version 1)
Quarter: 2024Q3

REPORT INFORMATION
  Report Type: Spontaneous
  Country: FR (occurrence: FR)
  Receive Date: 20240808
  Receipt Date: 20240808
  Transmission Date: 20241017
  Serious: Yes (Hospitalization, Other)
  Sender: PFIZER
  Company Number: FR-009507513-1302FRA013287

PATIENT
  Age: 60 Year
  Sex: Male

DRUGS (4)
  1. DOXORUBICIN HYDROCHLORIDE [Suspect]
     Active Substance: DOXORUBICIN HYDROCHLORIDE
     Indication: Rhabdomyosarcoma
     Dosage: UNK
     Route: 042
     Dates: start: 20121009, end: 20121011
  2. IFOSFAMIDE [Interacting]
     Active Substance: IFOSFAMIDE
     Indication: Rhabdomyosarcoma
     Dosage: 4600 MG, QD
     Route: 042
     Dates: start: 20121009, end: 20121011
  3. EMEND [Interacting]
     Active Substance: APREPITANT
     Indication: Prophylaxis of nausea and vomiting
     Dosage: 125 MG, 1X/DAY
     Route: 048
     Dates: start: 20121009, end: 20121009
  4. EMEND [Interacting]
     Active Substance: APREPITANT
     Dosage: 80 MG, 1X/DAY
     Dates: start: 20121010, end: 20121011

REACTIONS (2)
  - Encephalopathy [Recovered/Resolved]
  - Off label use [Unknown]

NARRATIVE: CASE EVENT DATE: 20121009
